FAERS Safety Report 7411895-1 (Version None)
Quarter: 2011Q2

REPORT INFORMATION
  Report Type: 
  Country: None (occurrence: None)
  Receive Date: 20110413
  Receipt Date: 20110401
  Transmission Date: 20111010
  Serious: Yes (Other)
  Sender: FDA-Public Use
  Company Number: US-JNJFOC-20110403686

PATIENT
  Age: 85 Year
  Sex: Female
  Weight: 45.36 kg

DRUGS (3)
  1. BENADRYL ALLERGY DYE-FREE [Suspect]
     Indication: RHINORRHOEA
     Route: 048
  2. THYROID PREPARATIONS [Concomitant]
     Indication: THYROID DISORDER
     Route: 048
  3. BENADRYL ALLERGY DYE-FREE [Suspect]
     Route: 048

REACTIONS (3)
  - SOMNOLENCE [None]
  - HALLUCINATION [None]
  - SLEEP TALKING [None]
